FAERS Safety Report 12808837 (Version 1)
Quarter: 2016Q4

REPORT INFORMATION
  Report Type: Spontaneous
  Country: HR (occurrence: HR)
  Receive Date: 20161004
  Receipt Date: 20161004
  Transmission Date: 20170207
  Serious: Yes (Other)
  Sender: FDA-Public Use
  Company Number: HR-SA-2016SA178181

PATIENT
  Sex: Male

DRUGS (6)
  1. VINCRISTINE [Suspect]
     Active Substance: VINCRISTINE
     Indication: IMMUNOSUPPRESSION
     Route: 065
     Dates: start: 2012
  2. RITUXIMAB [Suspect]
     Active Substance: RITUXIMAB
     Indication: IMMUNOSUPPRESSION
     Route: 065
     Dates: start: 201208
  3. CYCLOPHOSPHAMIDE. [Suspect]
     Active Substance: CYCLOPHOSPHAMIDE
     Indication: IMMUNOSUPPRESSION
     Route: 065
     Dates: start: 2012
  4. DOXORUBICIN [Suspect]
     Active Substance: DOXORUBICIN
     Indication: IMMUNOSUPPRESSION
     Route: 065
     Dates: start: 2012
  5. LEUKINE [Suspect]
     Active Substance: SARGRAMOSTIM
     Indication: ALVEOLAR PROTEINOSIS
     Route: 055
     Dates: start: 201110
  6. PREDNISOLONE. [Suspect]
     Active Substance: PREDNISOLONE
     Indication: IMMUNOSUPPRESSION
     Route: 065
     Dates: start: 2012

REACTIONS (6)
  - Bone pain [Unknown]
  - Seizure [Unknown]
  - Pneumonia [Unknown]
  - Drug ineffective for unapproved indication [Unknown]
  - Posterior reversible encephalopathy syndrome [Unknown]
  - Pain in jaw [Unknown]

NARRATIVE: CASE EVENT DATE: 2012
